FAERS Safety Report 20120750 (Version 2)
Quarter: 2021Q4

REPORT INFORMATION
  Report Type: Spontaneous
  Country: IT (occurrence: IT)
  Receive Date: 20211126
  Receipt Date: 20211222
  Transmission Date: 20220304
  Serious: Yes (Hospitalization)
  Sender: FDA-Public Use
  Company Number: IT-UCBSA-2021054757

PATIENT
  Age: 60 Year
  Sex: Male

DRUGS (7)
  1. KEPPRA [Suspect]
     Active Substance: LEVETIRACETAM
     Indication: Seizure
     Dosage: 1000 MILLIGRAM PER DAY
  2. KEPPRA [Suspect]
     Active Substance: LEVETIRACETAM
     Dosage: DOSE TAPERED
  3. KEPPRA [Suspect]
     Active Substance: LEVETIRACETAM
     Dosage: 1000 MILLIGRAM PER DAY
  4. KEPPRA [Suspect]
     Active Substance: LEVETIRACETAM
     Dosage: 500 MILLIGRAM PER DAY
  5. CITALOPRAM [Concomitant]
     Active Substance: CITALOPRAM HYDROBROMIDE
     Indication: Product used for unknown indication
     Dosage: UNK
  6. EVEROLIMUS [Concomitant]
     Active Substance: EVEROLIMUS
     Indication: Product used for unknown indication
     Dosage: UNK
  7. BASILIXIMAB [Concomitant]
     Active Substance: BASILIXIMAB
     Indication: Product used for unknown indication
     Dosage: UNK

REACTIONS (2)
  - Confusional state [Recovering/Resolving]
  - Behaviour disorder [Recovering/Resolving]
